FAERS Safety Report 6803926-4 (Version None)
Quarter: 2010Q2

REPORT INFORMATION
  Report Type: 
  Country: None (occurrence: None)
  Receive Date: 20100628
  Receipt Date: 20060628
  Transmission Date: 20101027
  Serious: No
  Sender: FDA-Public Use
  Company Number: US-PFIZER INC-2006082086

PATIENT

DRUGS (6)
  1. SUTENT [Suspect]
     Indication: DRUG USE FOR UNKNOWN INDICATION
     Dosage: DAILY
     Route: 065
  2. METFORMIN HCL [Concomitant]
     Dosage: TID
  3. STARLIX [Concomitant]
     Dosage: TID
  4. GLIPIZIDE [Concomitant]
     Dosage: AT BADTIME AND EVERY MORNING
     Route: 065
  5. LISINOPRIL [Concomitant]
     Dosage: EVERY MORNING
     Route: 065
  6. HYDROCHLOROTHIAZIDE [Concomitant]
     Dosage: EVERY MORNING
     Route: 065

REACTIONS (1)
  - LIP SWELLING [None]
